FAERS Safety Report 4976165-X (Version None)
Quarter: 2006Q2

REPORT INFORMATION
  Report Type: 
  Country: None (occurrence: None)
  Receive Date: 20060411
  Receipt Date: 20060330
  Transmission Date: 20061013
  Serious: Yes (Hospitalization)
  Sender: FDA-Public Use
  Company Number: TCI2006A01300

PATIENT
  Age: 70 Year
  Sex: Male

DRUGS (5)
  1. ACTOS [Suspect]
     Indication: DIABETES MELLITUS
     Dosage: SEE IMAGE, PER ORAL
     Route: 048
     Dates: start: 20030516, end: 20030529
  2. ACTOS [Suspect]
     Indication: DIABETES MELLITUS
     Dosage: SEE IMAGE, PER ORAL
     Route: 048
     Dates: start: 20030530, end: 20041209
  3. ACTOS [Suspect]
     Indication: DIABETES MELLITUS
     Dosage: SEE IMAGE, PER ORAL
     Route: 048
     Dates: start: 20050527, end: 20060314
  4. EUGLUCON (GLIBENCLAMIDE) [Concomitant]
  5. METFORMIN HCL [Concomitant]

REACTIONS (10)
  - CHOLECYSTITIS [None]
  - CHOLELITHIASIS [None]
  - DIABETES MELLITUS INADEQUATE CONTROL [None]
  - GLYCOSYLATED HAEMOGLOBIN INCREASED [None]
  - LYMPHOCYTE PERCENTAGE DECREASED [None]
  - PYREXIA [None]
  - RENAL IMPAIRMENT [None]
  - RHABDOMYOLYSIS [None]
  - SEPSIS [None]
  - WHITE BLOOD CELL COUNT INCREASED [None]
